FAERS Safety Report 5033522-3 (Version None)
Quarter: 2006Q2

REPORT INFORMATION
  Report Type: 
  Country: None (occurrence: None)
  Receive Date: 20060623
  Receipt Date: 20060612
  Transmission Date: 20061013
  Serious: Yes (Hospitalization)
  Sender: FDA-Public Use
  Company Number: GB-JNJFOC-20060603234

PATIENT
  Age: 39 Year
  Sex: Male

DRUGS (5)
  1. REMICADE [Suspect]
     Dosage: 6 WEEK
     Route: 042
  2. REMICADE [Suspect]
     Dosage: 2 WEEK
     Route: 042
  3. REMICADE [Suspect]
     Indication: PSORIASIS
     Dosage: 0 WEEK
     Route: 042
  4. METHOTREXATE [Concomitant]
     Indication: PSORIASIS
  5. MYCOPHENOLATE MOFETIL [Concomitant]
     Indication: PSORIASIS

REACTIONS (4)
  - PYREXIA [None]
  - SPLENIC ABSCESS [None]
  - THROMBOCYTOPENIA [None]
  - TUBERCULOSIS [None]
